FAERS Safety Report 23714478 (Version 3)
Quarter: 2024Q2

REPORT INFORMATION
  Report Type: Spontaneous
  Country: US (occurrence: US)
  Receive Date: 20240406
  Receipt Date: 20240509
  Transmission Date: 20240716
  Serious: Yes (Other)
  Sender: FDA-Public Use
  Company Number: US-AUROBINDO-AUR-APL-2024-016038

PATIENT
  Age: 82 Year
  Sex: Male
  Weight: 72 kg

DRUGS (2)
  1. LORATADINE [Suspect]
     Active Substance: LORATADINE
     Indication: Hypersensitivity
     Dosage: UNK (TOOK 01 OR 02 DAYS)
     Route: 065
  2. Coricidin [Concomitant]
     Indication: Product used for unknown indication
     Dosage: UNK
     Route: 065

REACTIONS (9)
  - Somnolence [Unknown]
  - Eye pruritus [Unknown]
  - Lacrimation increased [Unknown]
  - Blood pressure abnormal [Unknown]
  - Sneezing [Unknown]
  - Hypertension [Unknown]
  - Illness [Unknown]
  - Drug ineffective [Unknown]
  - Unevaluable event [Unknown]
